FAERS Safety Report 9418615 (Version 3)
Quarter: 2017Q4

REPORT INFORMATION
  Report Type: Spontaneous
  Country: US (occurrence: US)
  Receive Date: 20130725
  Receipt Date: 20171010
  Transmission Date: 20180321
  Serious: Yes (Other)
  Sender: FDA-Public Use
  Company Number: US-JNJFOC-20130618054

PATIENT
  Sex: Female

DRUGS (21)
  1. ALEVE [Suspect]
     Active Substance: NAPROXEN SODIUM
     Indication: ARTHRALGIA
     Route: 065
  2. ALEVE [Suspect]
     Active Substance: NAPROXEN SODIUM
     Indication: ARTHRITIS
     Route: 065
  3. VICODIN [Concomitant]
     Active Substance: ACETAMINOPHEN\HYDROCODONE BITARTRATE
     Indication: PAIN MANAGEMENT
     Dosage: 5/325 MG 4 TIMES DAILY
     Route: 065
     Dates: start: 2006
  4. ALEVE [Suspect]
     Active Substance: NAPROXEN SODIUM
     Indication: SPINAL PAIN
     Route: 065
     Dates: start: 2004
  5. NEURONTIN [Suspect]
     Active Substance: GABAPENTIN
     Indication: OSTEOARTHRITIS
     Route: 065
  6. ALEVE [Suspect]
     Active Substance: NAPROXEN SODIUM
     Indication: ARTHRALGIA
     Route: 065
  7. ALEVE [Suspect]
     Active Substance: NAPROXEN SODIUM
     Indication: SPINAL PAIN
     Route: 065
  8. ALEVE [Suspect]
     Active Substance: NAPROXEN SODIUM
     Indication: SPINAL PAIN
     Route: 065
  9. CELEBREX [Suspect]
     Active Substance: CELECOXIB
     Indication: PAIN
     Route: 065
  10. ALEVE [Suspect]
     Active Substance: NAPROXEN SODIUM
     Indication: ARTHRITIS
     Route: 065
  11. ASPIRIN. [Suspect]
     Active Substance: ASPIRIN
     Indication: PRODUCT USED FOR UNKNOWN INDICATION
     Route: 065
  12. ALEVE [Suspect]
     Active Substance: NAPROXEN SODIUM
     Indication: ARTHRALGIA
     Route: 065
     Dates: start: 2004
  13. ALEVE [Suspect]
     Active Substance: NAPROXEN SODIUM
     Indication: ARTHRITIS
     Route: 065
     Dates: start: 2004
  14. TYLENOL [Concomitant]
     Active Substance: ACETAMINOPHEN
     Indication: PAIN MANAGEMENT
     Route: 065
  15. MOTRIN IB [Suspect]
     Active Substance: IBUPROFEN
     Route: 065
  16. CELEBREX [Suspect]
     Active Substance: CELECOXIB
     Indication: PAIN
     Dosage: OR 100 MG TWICE DAILY
     Route: 065
     Dates: start: 2014
  17. CELEBREX [Suspect]
     Active Substance: CELECOXIB
     Indication: PAIN
     Route: 065
  18. NAPROXEN. [Suspect]
     Active Substance: NAPROXEN
     Indication: PAIN MANAGEMENT
     Route: 065
  19. MOTRIN IB [Suspect]
     Active Substance: IBUPROFEN
     Indication: PAIN MANAGEMENT
     Route: 065
  20. CELEBREX [Suspect]
     Active Substance: CELECOXIB
     Indication: PAIN
     Route: 065
     Dates: start: 2007
  21. NORCO [Concomitant]
     Active Substance: ACETAMINOPHEN\HYDROCODONE BITARTRATE
     Indication: PAIN
     Route: 065

REACTIONS (6)
  - Drug intolerance [Unknown]
  - Epigastric discomfort [Unknown]
  - Gastric ulcer [Unknown]
  - Abdominal pain upper [Recovered/Resolved]
  - Abdominal discomfort [Unknown]
  - Gastric perforation [Unknown]
